FAERS Safety Report 23137947 (Version 1)
Quarter: 2023Q4

REPORT INFORMATION
  Report Type: Spontaneous
  Country: US (occurrence: US)
  Receive Date: 20231102
  Receipt Date: 20231102
  Transmission Date: 20240110
  Serious: No
  Sender: FDA-Public Use
  Company Number: US-JNJFOC-20231069122

PATIENT
  Age: 21 Year
  Sex: Male

DRUGS (2)
  1. RISPERDAL [Suspect]
     Active Substance: RISPERIDONE
     Indication: Schizophrenia
     Dosage: VARYING DOSES OF 0.5 MG, 2 MG, 2.5 MG
     Route: 048
     Dates: end: 201012
  2. VISTARIL (HYDROXYZINE HYDROCHLORIDE) [Suspect]
     Active Substance: HYDROXYZINE HYDROCHLORIDE
     Indication: Schizophrenia
     Route: 065

REACTIONS (2)
  - Weight increased [Unknown]
  - Galactorrhoea [Unknown]

NARRATIVE: CASE EVENT DATE: 20101201
